FAERS Safety Report 18192718 (Version 1)
Quarter: 2020Q3

REPORT INFORMATION
  Report Type: Spontaneous
  Country: US (occurrence: US)
  Receive Date: 20200825
  Receipt Date: 20200825
  Transmission Date: 20201103
  Serious: Yes (Other)
  Sender: FDA-Public Use
  Company Number: US-HIKMA PHARMACEUTICALS USA INC.-US-H14001-20-03909

PATIENT
  Sex: Male

DRUGS (2)
  1. OXYCONTIN [Suspect]
     Active Substance: OXYCODONE HYDROCHLORIDE
     Indication: PRODUCT USED FOR UNKNOWN INDICATION
     Dosage: UNKNOWN
     Route: 065
  2. MORPHINE [Suspect]
     Active Substance: MORPHINE
     Indication: PRODUCT USED FOR UNKNOWN INDICATION
     Dosage: UNKNOWN
     Route: 065

REACTIONS (10)
  - Prostatic disorder [Unknown]
  - Hypotension [Unknown]
  - Haemorrhoids [Unknown]
  - Tooth loss [Unknown]
  - Drug dependence [Unknown]
  - Cardiac disorder [Unknown]
  - Loss of consciousness [Unknown]
  - Fall [Unknown]
  - Hypertension [Unknown]
  - Diabetes mellitus [Unknown]
